FAERS Safety Report 7782977-X (Version None)
Quarter: 2011Q3

REPORT INFORMATION
  Report Type: 
  Country: None (occurrence: None)
  Receive Date: 20110928
  Receipt Date: 20110919
  Transmission Date: 20111222
  Serious: Yes (Death, Hospitalization)
  Sender: FDA-Public Use
  Company Number: LB-SANOFI-AVENTIS-2010SA040648

PATIENT
  Age: 61 Year
  Sex: Male
  Weight: 74.5 kg

DRUGS (22)
  1. OXALIPLATIN [Suspect]
     Route: 042
  2. LEUCOVORIN CALCIUM [Suspect]
     Indication: COLORECTAL CANCER
     Route: 042
     Dates: start: 20100604, end: 20100604
  3. SOLU-MEDROL [Concomitant]
  4. MAGNE-B6 [Concomitant]
  5. MOTILIUM [Concomitant]
  6. RABEPRAZOLE SODIUM [Concomitant]
  7. DIFLUCAN [Concomitant]
  8. ZANTAC [Concomitant]
  9. PRIMPERAN TAB [Concomitant]
  10. LEUCOVORIN CALCIUM [Suspect]
     Route: 042
  11. OXALIPLATIN [Suspect]
     Indication: COLORECTAL CANCER
     Route: 042
     Dates: start: 20100604, end: 20100604
  12. EFUDEX [Suspect]
     Indication: COLORECTAL CANCER
     Route: 042
     Dates: start: 20100604, end: 20100604
  13. ALL OTHER THERAPEUTIC PRODUCTS [Concomitant]
  14. ALL OTHER THERAPEUTIC PRODUCTS [Concomitant]
  15. FLAGYL [Concomitant]
  16. ZOLOFT [Concomitant]
  17. CALCIUM GLUCONATE [Concomitant]
  18. ZOFRAN [Concomitant]
  19. EFUDEX [Suspect]
     Route: 042
  20. XANAX [Concomitant]
  21. TINZAPARIN SODIUM [Concomitant]
  22. MAGNESIUM SULFATE [Concomitant]

REACTIONS (3)
  - FATIGUE [None]
  - ASTHENIA [None]
  - RENAL FAILURE [None]
